FAERS Safety Report 21214167 (Version 2)
Quarter: 2022Q4

REPORT INFORMATION
  Report Type: Spontaneous
  Country: US (occurrence: US)
  Receive Date: 20220816
  Receipt Date: 20221013
  Transmission Date: 20230113
  Serious: Yes (Hospitalization)
  Sender: FDA-Public Use
  Company Number: US-NOVOPROD-947079

PATIENT
  Age: 73 Year
  Sex: Female

DRUGS (2)
  1. OZEMPIC [Suspect]
     Active Substance: SEMAGLUTIDE
     Dosage: 0.25 MG, QW
     Route: 058
  2. OZEMPIC [Suspect]
     Active Substance: SEMAGLUTIDE
     Indication: Type 2 diabetes mellitus
     Dosage: 0.5 MG, QW
     Route: 058
     Dates: start: 202206

REACTIONS (2)
  - Urinary tract disorder [Recovering/Resolving]
  - Gastrooesophageal reflux disease [Recovering/Resolving]

NARRATIVE: CASE EVENT DATE: 20220730
